FAERS Safety Report 9435007 (Version 1)
Quarter: 2013Q3

REPORT INFORMATION
  Report Type: Report from Study
  Country: US (occurrence: US)
  Receive Date: 20130801
  Receipt Date: 20130801
  Transmission Date: 20140515
  Serious: No
  Sender: FDA-Public Use
  Company Number: PHEH2013US016188

PATIENT
  Age: 64 Year
  Sex: Male

DRUGS (3)
  1. TASIGNA [Suspect]
     Indication: CHRONIC MYELOID LEUKAEMIA
     Dosage: 300 MG, BID
     Dates: start: 201306
  2. FUROSEMIDE [Concomitant]
     Dosage: 40 MG, UNK
  3. VERAPAMIL [Concomitant]
     Dosage: 360 MG, UNK

REACTIONS (4)
  - Hypoaesthesia [Unknown]
  - Arthralgia [Unknown]
  - Weight decreased [Unknown]
  - Decreased appetite [Unknown]
